FAERS Safety Report 13056289 (Version 1)
Quarter: 2016Q4

REPORT INFORMATION
  Report Type: Spontaneous
  Country: US (occurrence: US)
  Receive Date: 20161222
  Receipt Date: 20161222
  Transmission Date: 20170207
  Serious: No
  Sender: FDA-Public Use
  Company Number: US-PFIZER INC-2016582857

PATIENT
  Age: 86 Year
  Sex: Female

DRUGS (2)
  1. CELEBREX [Suspect]
     Active Substance: CELECOXIB
     Dosage: UNK
  2. SELDANE [Suspect]
     Active Substance: TERFENADINE
     Dosage: UNK

REACTIONS (1)
  - Drug hypersensitivity [Unknown]
